FAERS Safety Report 5039556-7 (Version None)
Quarter: 2006Q2

REPORT INFORMATION
  Report Type: 
  Country: None (occurrence: None)
  Receive Date: 20060629
  Receipt Date: 20060324
  Transmission Date: 20061013
  Serious: Yes (Hospitalization)
  Sender: FDA-Public Use
  Company Number: US-BOEHRINGER INGELHEIM PHARMACEUTICALS, INC.-2006-BP-03378BP

PATIENT
  Age: 66 Year
  Sex: Male

DRUGS (9)
  1. ATROVENT [Suspect]
     Indication: CHRONIC OBSTRUCTIVE PULMONARY DISEASE
     Route: 055
  2. ALBUTEROL [Concomitant]
     Indication: CHRONIC OBSTRUCTIVE PULMONARY DISEASE
  3. ALBUTEROL SULFATE [Concomitant]
  4. IPRATROPIUM BROMIDE [Concomitant]
  5. GLUCOTROL [Concomitant]
  6. MAGNESIUM [Concomitant]
  7. VYTORIN [Concomitant]
  8. THERMOLLINE [Concomitant]
  9. BYETTA [Concomitant]

REACTIONS (1)
  - PNEUMONIA [None]
